FAERS Safety Report 15762678 (Version 12)
Quarter: 2019Q4

REPORT INFORMATION
  Report Type: Report from Study
  Country: US (occurrence: US)
  Receive Date: 20181226
  Receipt Date: 20191231
  Transmission Date: 20200122
  Serious: Yes (Hospitalization, Other)
  Sender: FDA-Public Use
  Company Number: US-ACTELION-A-US2018-167396

PATIENT
  Age: 54 Year
  Sex: Female
  Weight: 56.69 kg

DRUGS (5)
  1. OPSUMIT [Suspect]
     Active Substance: MACITENTAN
     Indication: PULMONARY HYPERTENSION
     Dosage: 10 MG, QD
     Route: 048
  2. REMODULIN [Suspect]
     Active Substance: TREPROSTINIL
     Dosage: 31 NG/KG, PER MIN
     Route: 058
  3. ADCIRCA [Concomitant]
     Active Substance: TADALAFIL
  4. OPSUMIT [Suspect]
     Active Substance: MACITENTAN
     Dosage: 10 MG, QD
     Route: 048
     Dates: start: 20180309
  5. REMODULIN [Suspect]
     Active Substance: TREPROSTINIL
     Indication: PRODUCT USED FOR UNKNOWN INDICATION
     Dosage: UNK
     Route: 058

REACTIONS (51)
  - Catheter site erythema [Unknown]
  - Influenza [Unknown]
  - Mood altered [Unknown]
  - Bedridden [Unknown]
  - Flushing [Unknown]
  - Diarrhoea [Unknown]
  - Device related sepsis [Unknown]
  - Head injury [Unknown]
  - Fluid retention [Unknown]
  - Catheterisation cardiac [Unknown]
  - Nasal congestion [Unknown]
  - Peripheral swelling [Unknown]
  - Vomiting [Unknown]
  - Deep vein thrombosis [Unknown]
  - Device dislocation [Recovered/Resolved]
  - Catheter placement [Unknown]
  - Dyspnoea [Unknown]
  - Dizziness [Unknown]
  - Medial tibial stress syndrome [Unknown]
  - Restless legs syndrome [Unknown]
  - Cough [Unknown]
  - Oxygen saturation decreased [Unknown]
  - Catheter site swelling [Unknown]
  - Loss of personal independence in daily activities [Unknown]
  - Pain [Unknown]
  - Thrombosis [Unknown]
  - Hepatic encephalopathy [Unknown]
  - Adverse drug reaction [Unknown]
  - Infusion site pain [Unknown]
  - Rhinorrhoea [Unknown]
  - Colonoscopy [Recovered/Resolved]
  - Malaise [Unknown]
  - Abdominal discomfort [Unknown]
  - Nausea [Unknown]
  - Hallucination [Unknown]
  - Syncope [Unknown]
  - Application site pruritus [Unknown]
  - Weight decreased [Unknown]
  - Paraesthesia [Unknown]
  - Catheter site irritation [Unknown]
  - Catheter site discharge [Unknown]
  - Arthralgia [Unknown]
  - Feeling abnormal [Unknown]
  - Pain in extremity [Unknown]
  - Fatigue [Unknown]
  - Catheter site haemorrhage [Unknown]
  - Fall [Unknown]
  - Device issue [Unknown]
  - Catheter site infection [Unknown]
  - Catheter site pain [Unknown]
  - Headache [Unknown]

NARRATIVE: CASE EVENT DATE: 20180731
